FAERS Safety Report 5302456-9 (Version None)
Quarter: 2007Q2

REPORT INFORMATION
  Report Type: 
  Country: None (occurrence: None)
  Receive Date: 20070419
  Receipt Date: 20070406
  Transmission Date: 20071010
  Serious: Yes (Hospitalization, Other)
  Sender: FDA-Public Use
  Company Number: US-ELI_LILLY_AND_COMPANY-US200610000194

PATIENT
  Age: 79 Year
  Sex: Female

DRUGS (13)
  1. FORTEO [Suspect]
     Indication: OSTEOPOROSIS
     Dosage: UNK, UNK
     Dates: start: 20060403
  2. FORTEO [Suspect]
     Dosage: UNK D/F, UNK
  3. ANGIOTENSIN II [Concomitant]
     Indication: HYPERTENSION
  4. LEXAPRO [Concomitant]
     Indication: DEPRESSION
  5. PREDNISONE TAB [Concomitant]
     Indication: LIVER DISORDER
     Dosage: 2.5 MG, QOD
  6. IMURAN [Concomitant]
     Indication: LIVER DISORDER
     Dosage: 25 MG, DAILY (1/D)
  7. AVAPRO [Concomitant]
     Indication: BLOOD PRESSURE
  8. CHLOROTHIAZIDE [Concomitant]
     Indication: BLOOD PRESSURE
  9. ZETIA [Concomitant]
     Indication: BLOOD CHOLESTEROL
  10. CALCIUM W/VITAMIN D NOS [Concomitant]
     Indication: MINERAL SUPPLEMENTATION
     Dosage: 600 MG, 3/D
  11. PRILOSEC [Concomitant]
     Dosage: 20 MG, DAILY (1/D)
  12. FENTANYL [Concomitant]
     Indication: PAIN
  13. MEPERGAN [Concomitant]

REACTIONS (8)
  - BLOOD URINE PRESENT [None]
  - DYSURIA [None]
  - KIDNEY INFECTION [None]
  - METASTATIC NEOPLASM [None]
  - MULTIPLE MYELOMA [None]
  - SPINAL COMPRESSION FRACTURE [None]
  - VERTEBROPLASTY [None]
  - VISUAL ACUITY REDUCED [None]
